FAERS Safety Report 5118309-5 (Version None)
Quarter: 2006Q3

REPORT INFORMATION
  Report Type: 
  Country: None (occurrence: None)
  Receive Date: 20060926
  Receipt Date: 20060912
  Transmission Date: 20061208
  Serious: Yes (Hospitalization)
  Sender: FDA-Public Use
  Company Number: IT200609003806

PATIENT
  Age: 67 Year
  Sex: Male

DRUGS (3)
  1. GEMZAR [Suspect]
     Indication: LUNG NEOPLASM MALIGNANT
     Dosage: 1000 MG/M2, WEEKLY (1/W), INTRAVENOUS
     Route: 042
     Dates: start: 20060809, end: 20060824
  2. LANSOPRAZOLE [Concomitant]
  3. PREDNISONE TAB [Concomitant]

REACTIONS (2)
  - LUNG DISORDER [None]
  - RESPIRATORY FAILURE [None]
